FAERS Safety Report 4820945-8 (Version None)
Quarter: 2005Q4

REPORT INFORMATION
  Report Type: 
  Country: None (occurrence: None)
  Receive Date: 20051103
  Receipt Date: 20051020
  Transmission Date: 20060501
  Serious: Yes (Hospitalization)
  Sender: FDA-Public Use
  Company Number: DSA_70849_2005

PATIENT
  Age: 60 Year
  Sex: Male
  Weight: 77.8372 kg

DRUGS (4)
  1. ROXANOL [Suspect]
     Indication: ARTHRALGIA
     Dosage: 2 CC 6XD
  2. ROXANOL [Suspect]
     Indication: ARTHRALGIA
     Dosage: VAR UNK PO
     Route: 048
  3. MS CONTIN [Suspect]
     Indication: ARTHRALGIA
     Dosage: 90 MG BID PO
     Route: 048
     Dates: start: 20050614
  4. SB-485232 INJECTION [Suspect]
     Indication: METASTATIC MALIGNANT MELANOMA
     Dosage: 100 MG/KG 2XWK SC
     Route: 058
     Dates: start: 20050705, end: 20050805

REACTIONS (21)
  - AGGRESSION [None]
  - ARTHRALGIA [None]
  - BACK PAIN [None]
  - BONE PAIN [None]
  - CONSTIPATION [None]
  - DEPRESSED LEVEL OF CONSCIOUSNESS [None]
  - HALLUCINATION, AUDITORY [None]
  - HALLUCINATION, VISUAL [None]
  - MALIGNANT MELANOMA [None]
  - MALIGNANT NEOPLASM PROGRESSION [None]
  - MENINGEAL NEOPLASM [None]
  - NAUSEA [None]
  - NECK PAIN [None]
  - NEUTROPHIL PERCENTAGE INCREASED [None]
  - PRODUCTIVE COUGH [None]
  - PYREXIA [None]
  - SHOULDER PAIN [None]
  - SOMNOLENCE [None]
  - SPUTUM DISCOLOURED [None]
  - URINARY INCONTINENCE [None]
  - WHITE BLOOD CELL COUNT INCREASED [None]
